FAERS Safety Report 4927544-8 (Version None)
Quarter: 2006Q1

REPORT INFORMATION
  Report Type: 
  Country: None (occurrence: None)
  Receive Date: 20060228
  Receipt Date: 20060216
  Transmission Date: 20060701
  Serious: Yes (Hospitalization)
  Sender: FDA-Public Use
  Company Number: FR-ROCHE-437043

PATIENT
  Age: 15 Year
  Sex: Female

DRUGS (5)
  1. CELLCEPT [Suspect]
     Indication: DRUG USE FOR UNKNOWN INDICATION
     Route: 048
     Dates: start: 19960815
  2. CELLCEPT [Suspect]
     Route: 048
     Dates: start: 20060109
  3. NEORAL [Concomitant]
     Route: 048
     Dates: start: 19960815
  4. CORTANCYL [Concomitant]
     Route: 048
     Dates: start: 19960815
  5. ZYLORIC [Concomitant]
     Route: 048

REACTIONS (3)
  - HYPOGAMMAGLOBULINAEMIA [None]
  - HYPOPROTEINAEMIA [None]
  - LYMPHOPENIA [None]
